FAERS Safety Report 5919206-5 (Version None)
Quarter: 2008Q4

REPORT INFORMATION
  Report Type: 
  Country: None (occurrence: None)
  Receive Date: 20081014
  Receipt Date: 20081014
  Transmission Date: 20090506
  Serious: No
  Sender: FDA-Public Use
  Company Number: None

PATIENT
  Age: 60 Year
  Sex: Male

DRUGS (1)
  1. LIPITOR [Suspect]

REACTIONS (8)
  - ANXIETY [None]
  - GAIT DISTURBANCE [None]
  - MUSCLE INJURY [None]
  - MUSCULAR WEAKNESS [None]
  - NEOPLASM [None]
  - NERVE INJURY [None]
  - SPINAL MYELOGRAM ABNORMAL [None]
  - UPPER MOTOR NEURONE LESION [None]
